FAERS Safety Report 5306298-X (Version None)
Quarter: 2007Q2

REPORT INFORMATION
  Report Type: 
  Country: None (occurrence: None)
  Receive Date: 20070424
  Receipt Date: 20070411
  Transmission Date: 20071010
  Serious: Yes (Hospitalization)
  Sender: FDA-Public Use
  Company Number: US-ELI_LILLY_AND_COMPANY-US200704002575

PATIENT
  Age: 44 Year
  Sex: Female

DRUGS (2)
  1. CYMBALTA [Suspect]
     Indication: ANXIETY
     Dosage: UNK, UNK
     Route: 048
     Dates: start: 20070201, end: 20070201
  2. VOLTAREN /00372301/ [Concomitant]
     Dosage: UNK, UNK

REACTIONS (3)
  - HYPERSOMNIA [None]
  - LYMPH GLAND INFECTION [None]
  - SKIN INFECTION [None]
